FAERS Safety Report 22022438 (Version 1)
Quarter: 2023Q1

REPORT INFORMATION
  Report Type: Spontaneous
  Country: US (occurrence: US)
  Receive Date: 20230222
  Receipt Date: 20230222
  Transmission Date: 20230417
  Serious: No
  Sender: FDA-Public Use
  Company Number: US-BRISTOL-MYERS SQUIBB COMPANY-2023-019255

PATIENT
  Age: 41 Year
  Sex: Male

DRUGS (1)
  1. ONUREG [Suspect]
     Active Substance: AZACITIDINE
     Indication: Product used for unknown indication
     Dosage: DAYS 1-5 OF A 28 DAYS CYCLE
     Route: 058

REACTIONS (2)
  - Off label use [Unknown]
  - Incorrect route of product administration [Unknown]
